FAERS Safety Report 6107365-3 (Version None)
Quarter: 2009Q1

REPORT INFORMATION
  Report Type: 
  Country: None (occurrence: None)
  Receive Date: 20090303
  Receipt Date: 20090217
  Transmission Date: 20090719
  Serious: Yes (Hospitalization, Disabling)
  Sender: FDA-Public Use
  Company Number: THQ2009A00749

PATIENT
  Age: 69 Year
  Sex: Female

DRUGS (5)
  1. LANSOPRAZOLE [Suspect]
     Dosage: 30 MG (30 MG, 2 IN 1 D)
     Route: 048
     Dates: start: 20061222, end: 20070924
  2. CALCICHEW (CALCIUM CARBONATE) [Concomitant]
  3. NAUDICELLE PLUS (TABLETS) [Concomitant]
  4. NU-SEALS ASPIRIN (ACETYLSALICYLIC ACID) [Concomitant]
  5. ANXICALM (DIAZEPAM) [Concomitant]

REACTIONS (5)
  - CONDITION AGGRAVATED [None]
  - DIARRHOEA [None]
  - PHOBIA [None]
  - PROTEIN-LOSING GASTROENTEROPATHY [None]
  - WEIGHT DECREASED [None]
